FAERS Safety Report 8572668 (Version 2)
Quarter: 2014Q1

REPORT INFORMATION
  Report Type: Spontaneous
  Country: US (occurrence: None)
  Receive Date: 20120323
  Receipt Date: 20130305
  Transmission Date: 20141002
  Serious: Yes (Hospitalization, Other)
  Sender: FDA-Public Use
  Company Number: 163-21880-11111943

PATIENT
  Age: 72 Year
  Sex: Male

DRUGS (2)
  1. REVLIMID ( LENALIDOMIDE) (10 MILLIGRAM, CAPSULES) [Suspect]
     Indication: PLASMA CELL MYELOMA
     Dates: start: 20110502
  2. ACYCLOVIR (ACICLOVIR) (ACICLOVIR) [Concomitant]

REACTIONS (1)
  - Sinusitis [None]
